FAERS Safety Report 5263261-5 (Version None)
Quarter: 2007Q1

REPORT INFORMATION
  Report Type: 
  Country: None (occurrence: None)
  Receive Date: 20061219
  Receipt Date: 20061013
  Transmission Date: 20070707
  Serious: No
  Sender: FDA-Public Use
  Company Number: 2006US002279

PATIENT
  Age: 83 Year
  Sex: Female

DRUGS (10)
  1. VESICARE [Suspect]
     Indication: URINARY INCONTINENCE
     Dosage: SEE IMAGE
     Route: 048
     Dates: start: 20061011, end: 20061012
  2. VESICARE [Suspect]
     Indication: URINARY INCONTINENCE
     Dosage: SEE IMAGE
     Route: 048
  3. CAPOTEN [Concomitant]
  4. LASIX [Concomitant]
  5. EVISTA [Concomitant]
  6. PREVACID [Concomitant]
  7. ZOLOFT [Concomitant]
  8. LIPITOR [Concomitant]
  9. POTASSIUM (POTASSIUM CHLORIDE) [Concomitant]
  10. TOPROL-XL [Concomitant]

REACTIONS (2)
  - PRURITUS [None]
  - RASH [None]
